FAERS Safety Report 17850841 (Version 2)
Quarter: 2020Q2

REPORT INFORMATION
  Report Type: Spontaneous
  Country: US (occurrence: US)
  Receive Date: 20200602
  Receipt Date: 20200602
  Transmission Date: 20200714
  Serious: Yes (Other)
  Sender: FDA-Public Use
  Company Number: US-PFIZER INC-2020200210

PATIENT
  Age: 11 Year
  Sex: Male
  Weight: 29.03 kg

DRUGS (1)
  1. ANBESOL REGULAR STRENGTH [Suspect]
     Active Substance: BENZOCAINE
     Indication: STOMATITIS
     Dosage: UNK (APPLY UNDERNEATH LIP TO AREA AFFECTED)

REACTIONS (17)
  - Dysarthria [Unknown]
  - Lip haemorrhage [Unknown]
  - Feeding disorder [Unknown]
  - Chapped lips [Unknown]
  - Skin exfoliation [Unknown]
  - Dyspnoea [Unknown]
  - Salivary hypersecretion [Unknown]
  - Crying [Unknown]
  - Tooth abscess [Unknown]
  - Drug hypersensitivity [Unknown]
  - Lip swelling [Unknown]
  - Oral pain [Unknown]
  - Pharyngeal swelling [Unknown]
  - Dry skin [Unknown]
  - Skin burning sensation [Unknown]
  - Depressed mood [Unknown]
  - Cheilitis [Unknown]

NARRATIVE: CASE EVENT DATE: 202005
